FAERS Safety Report 7226576-7 (Version None)
Quarter: 2011Q1

REPORT INFORMATION
  Report Type: 
  Country: None (occurrence: None)
  Receive Date: 20110114
  Receipt Date: 20101217
  Transmission Date: 20110831
  Serious: Yes (Hospitalization, Other)
  Sender: FDA-Public Use
  Company Number: US-BAYER-200936823NA

PATIENT
  Sex: Female
  Weight: 72.727 kg

DRUGS (19)
  1. YAZ [Suspect]
     Indication: ORAL CONTRACEPTION
     Route: 048
     Dates: start: 20080801, end: 20090301
  2. ERYTHROMYCIN [Concomitant]
     Dates: start: 20060101
  3. BENAZEPRIL HYDROCHLORIDE [Concomitant]
     Indication: HYPERTENSION
     Dates: start: 20050101, end: 20090101
  4. LORATADINE [Concomitant]
     Indication: MULTIPLE ALLERGIES
     Dates: start: 20080101, end: 20090101
  5. DEPO-PROVERA [Concomitant]
     Indication: CONTRACEPTION
  6. HYDROCHLOROTHIAZIDE [Concomitant]
     Dates: start: 20080101
  7. YASMIN [Suspect]
     Indication: ORAL CONTRACEPTION
     Route: 048
     Dates: start: 20060201, end: 20061201
  8. FLUCONAZOLE [Concomitant]
     Dates: start: 20060101, end: 20070101
  9. NAPROXEN [Concomitant]
     Dates: start: 20040101
  10. METOPROLOL [Concomitant]
     Dates: start: 20060101, end: 20070101
  11. ENALAPRIL [Concomitant]
     Dates: start: 20060101
  12. AMLODIPINE BESYLATE [Concomitant]
     Dates: start: 20080101
  13. SULFAMETHOXAZOLE AND TRIMETHOPRIM [Concomitant]
     Dates: start: 20060101
  14. METRONIDAZOLE [Concomitant]
     Dates: start: 20070101
  15. NICOTINE [Concomitant]
     Indication: TOBACCO USER
     Dates: start: 20060701
  16. ISOSORBIDE DINITRATE [Concomitant]
     Indication: HYPERTENSION
     Dates: start: 20060101, end: 20080101
  17. BUPROPION [Concomitant]
  18. LOTREL [Concomitant]
     Indication: CORONARY ARTERY DISEASE
     Dates: start: 20060101
  19. CLARITHROMYCIN [Concomitant]
     Dates: start: 20070101

REACTIONS (11)
  - CORONARY ARTERY DISEASE [None]
  - MYOCARDIAL INFARCTION [None]
  - ABDOMINAL PAIN UPPER [None]
  - PALPITATIONS [None]
  - PLEURITIC PAIN [None]
  - DYSPNOEA [None]
  - CEREBROVASCULAR ACCIDENT [None]
  - COUGH [None]
  - BRONCHITIS [None]
  - CHOLELITHIASIS [None]
  - CHOLECYSTITIS [None]
